FAERS Safety Report 7231281-7 (Version None)
Quarter: 2011Q1

REPORT INFORMATION
  Report Type: 
  Country: None (occurrence: None)
  Receive Date: 20110118
  Receipt Date: 20110112
  Transmission Date: 20110831
  Serious: Yes (Hospitalization)
  Sender: FDA-Public Use
  Company Number: JP-ROCHE-753449

PATIENT
  Sex: Male

DRUGS (19)
  1. ACTEMRA [Suspect]
     Route: 041
     Dates: start: 20091209, end: 20091209
  2. PREDNISOLONE [Concomitant]
     Route: 048
     Dates: start: 20091015, end: 20091111
  3. PREDNISOLONE [Concomitant]
     Route: 048
     Dates: start: 20091210, end: 20100106
  4. PREDNISOLONE [Concomitant]
     Dosage: DOSAGE FORM : PERORAL AGENT
     Route: 048
     Dates: end: 20090915
  5. MUCOSTA [Concomitant]
     Dosage: DOSAGE FORM : PERORAL AGENT
     Route: 048
  6. ACTEMRA [Suspect]
     Indication: RHEUMATOID ARTHRITIS
     Route: 041
     Dates: start: 20090818, end: 20090818
  7. ACTEMRA [Suspect]
     Route: 041
     Dates: start: 20091111, end: 20091111
  8. PREDNISOLONE [Concomitant]
     Route: 048
     Dates: start: 20100107, end: 20100203
  9. ACTEMRA [Suspect]
     Route: 041
     Dates: start: 20090915, end: 20090915
  10. ACTEMRA [Suspect]
     Route: 041
     Dates: start: 20091014, end: 20091014
  11. PREDNISOLONE [Concomitant]
     Route: 048
     Dates: start: 20090916, end: 20091014
  12. PREDNISOLONE [Concomitant]
     Route: 048
     Dates: start: 20091112, end: 20091209
  13. MOBIC [Concomitant]
     Route: 048
  14. NEUROTROPIN [Concomitant]
     Route: 048
  15. ACTEMRA [Suspect]
     Route: 041
     Dates: start: 20100203, end: 20110111
  16. AZULFIDINE [Concomitant]
     Dosage: DOSAGE FORM ENTERIC COATING
     Route: 048
  17. ISCOTIN [Concomitant]
     Route: 048
     Dates: start: 20090805
  18. PREDNISOLONE [Concomitant]
     Route: 048
     Dates: start: 20100204
  19. ACTEMRA [Suspect]
     Route: 041
     Dates: start: 20090106, end: 20090106

REACTIONS (1)
  - INTERSTITIAL LUNG DISEASE [None]
